FAERS Safety Report 8596471-X (Version None)
Quarter: 2012Q3

REPORT INFORMATION
  Report Type: 
  Country: None (occurrence: None)
  Receive Date: 20120815
  Receipt Date: 20120803
  Transmission Date: 20120928
  Serious: Yes (Hospitalization, Other)
  Sender: FDA-Public Use
  Company Number: DE-ACTELION-A-CH2012-69667

PATIENT
  Age: 65 Year
  Sex: Female
  Weight: 50 kg

DRUGS (14)
  1. NOVOTHYRAL [Concomitant]
  2. TRACLEER [Suspect]
     Dosage: 62.5 MG, BID
     Route: 048
     Dates: start: 20110901, end: 20111001
  3. PAROXETINE HCL [Concomitant]
  4. PREDNISONE TAB [Concomitant]
  5. TRACLEER [Suspect]
     Indication: PULMONARY HYPERTENSION
     Dosage: 125 MG, BID
     Route: 048
     Dates: start: 20111001, end: 20120720
  6. XIPAMID [Concomitant]
  7. PANTOPRAZOLE [Concomitant]
  8. TORSEMIDE [Concomitant]
  9. POTASSIUM CHLORIDE [Concomitant]
  10. MARCUMAR [Concomitant]
  11. SILDENAFIL [Concomitant]
  12. RAMIPRIL [Concomitant]
  13. SPIRONOLACTONE [Concomitant]
  14. TREPROSTINIL [Concomitant]

REACTIONS (8)
  - LIVER FUNCTION TEST ABNORMAL [None]
  - ALANINE AMINOTRANSFERASE INCREASED [None]
  - BLOOD ALKALINE PHOSPHATASE INCREASED [None]
  - BLOOD BILIRUBIN INCREASED [None]
  - GAMMA-GLUTAMYLTRANSFERASE INCREASED [None]
  - CHOLESTASIS [None]
  - INTERNATIONAL NORMALISED RATIO ABNORMAL [None]
  - ASPARTATE AMINOTRANSFERASE INCREASED [None]
